FAERS Safety Report 11997655 (Version 1)
Quarter: 2016Q1

REPORT INFORMATION
  Report Type: Spontaneous
  Country: US (occurrence: US)
  Receive Date: 20160203
  Receipt Date: 20160203
  Transmission Date: 20160526
  Serious: No
  Sender: FDA-Public Use
  Company Number: US-ANACOR-2015ANA00197

PATIENT
  Sex: Female
  Weight: 90.25 kg

DRUGS (1)
  1. KERYDIN [Suspect]
     Active Substance: TAVABOROLE
     Indication: ONYCHOMYCOSIS
     Dosage: UNK UNK, UP TO 3X/DAY
     Route: 061
     Dates: start: 201507, end: 20151113

REACTIONS (4)
  - Application site discolouration [Recovering/Resolving]
  - Inappropriate schedule of drug administration [Recovered/Resolved]
  - Hypersensitivity [Recovering/Resolving]
  - Application site pain [Not Recovered/Not Resolved]

NARRATIVE: CASE EVENT DATE: 2015
